FAERS Safety Report 5002934-6 (Version None)
Quarter: 2006Q2

REPORT INFORMATION
  Report Type: 
  Country: None (occurrence: None)
  Receive Date: 20060516
  Receipt Date: 20060511
  Transmission Date: 20061013
  Serious: Yes (Other)
  Sender: FDA-Public Use
  Company Number: US-GLAXOSMITHKLINE-A0605225A

PATIENT
  Age: 7 Year
  Sex: Female

DRUGS (6)
  1. ADVAIR DISKUS 100/50 [Suspect]
     Indication: ASTHMA
     Dosage: 1PUFF TWICE PER DAY
     Route: 055
     Dates: start: 20041101
  2. ALLEGRA [Concomitant]
  3. NASACORT [Concomitant]
  4. EYE DROPS [Concomitant]
  5. BENADRYL [Concomitant]
  6. ALLERGY SHOTS [Concomitant]

REACTIONS (2)
  - COUGH [None]
  - HALLUCINATION, AUDITORY [None]
